FAERS Safety Report 8908906 (Version 2)
Quarter: 2014Q1

REPORT INFORMATION
  Report Type: Spontaneous
  Country: US (occurrence: US)
  Receive Date: 20121113
  Receipt Date: 20140102
  Transmission Date: 20141002
  Serious: No
  Sender: FDA-Public Use
  Company Number: US-AMGEN-USASP2012011913

PATIENT
  Age: 57 Year
  Sex: Female

DRUGS (2)
  1. ENBREL [Suspect]
     Indication: RHEUMATOID ARTHRITIS
     Dosage: 50 MG, QWK
     Route: 065
     Dates: start: 20090915, end: 20131116
  2. ARAVA [Concomitant]
     Dosage: 20 MG, UNK
     Dates: start: 2007

REACTIONS (4)
  - Mobility decreased [Recovered/Resolved]
  - Sinus disorder [Not Recovered/Not Resolved]
  - Pharyngitis streptococcal [Not Recovered/Not Resolved]
  - Sinusitis [Not Recovered/Not Resolved]
